FAERS Safety Report 5477729-X (Version None)
Quarter: 2007Q4

REPORT INFORMATION
  Report Type: 
  Country: None (occurrence: None)
  Receive Date: 20071002
  Receipt Date: 20070919
  Transmission Date: 20080405
  Serious: Yes (Hospitalization)
  Sender: FDA-Public Use
  Company Number: GXKR2007BE08201

PATIENT
  Age: 37 Year
  Sex: Female

DRUGS (3)
  1. FLUOXETINE [Suspect]
  2. TRAZODONE HCL [Suspect]
     Dosage: 2000 MG, ORAL
     Route: 048
  3. FUROSEMIDE [Concomitant]

REACTIONS (9)
  - BRADYCARDIA [None]
  - DRUG INTERACTION [None]
  - DRUG LEVEL ABOVE THERAPEUTIC [None]
  - ELECTROCARDIOGRAM QT PROLONGED [None]
  - HYPOKALAEMIA [None]
  - HYPOMAGNESAEMIA [None]
  - HYPOTENSION [None]
  - INTENTIONAL OVERDOSE [None]
  - TORSADE DE POINTES [None]
